FAERS Safety Report 4487756-7 (Version None)
Quarter: 2004Q4

REPORT INFORMATION
  Report Type: 
  Country: None (occurrence: None)
  Receive Date: 20041025
  Receipt Date: 20040723
  Transmission Date: 20050328
  Serious: Yes (Death, Hospitalization)
  Sender: FDA-Public Use
  Company Number: 9055

PATIENT
  Age: 79 Year
  Sex: Female

DRUGS (11)
  1. METHOTREXATE [Suspect]
  2. LEFLUNOMIDE [Suspect]
  3. CAPTOPRIL [Concomitant]
  4. CELECOXIB [Concomitant]
  5. FOLIC ACID [Concomitant]
  6. FUROSEMIDE [Concomitant]
  7. OMEPRAZOLE [Concomitant]
  8. PREDNISOLONE [Concomitant]
  9. DOTHIEPIN HYDROCHLORIDE [Concomitant]
  10. CALCITRIOL [Concomitant]
  11. ESTRADIOL [Concomitant]

REACTIONS (2)
  - DRUG INTERACTION [None]
  - PANCYTOPENIA [None]
